FAERS Safety Report 12651265 (Version 3)
Quarter: 2016Q3

REPORT INFORMATION
  Report Type: Spontaneous
  Country: JP (occurrence: JP)
  Receive Date: 20160815
  Receipt Date: 20160916
  Transmission Date: 20161109
  Serious: Yes (Other)
  Sender: FDA-Public Use
  Company Number: JP-BAYER-2016-157219

PATIENT
  Age: 67 Year
  Sex: Female
  Weight: 40 kg

DRUGS (7)
  1. PROTECADIN [Suspect]
     Active Substance: LAFUTIDINE
     Indication: GASTRITIS PROPHYLAXIS
     Dosage: DAILY DOSE 10 MG,
     Route: 048
     Dates: start: 20150707, end: 20150711
  2. CLARITIN [Suspect]
     Active Substance: LORATADINE
     Indication: ANTIALLERGIC THERAPY
     Dosage: DAILY DOSE 10 MG
     Route: 048
     Dates: start: 20150707, end: 20150711
  3. MUCODYNE [Concomitant]
     Active Substance: CARBOCYSTEINE
     Indication: NASAL INFLAMMATION
     Dosage: DAILY DOSE 1500 MG
     Route: 048
     Dates: start: 20150707, end: 20150711
  4. CALONAL [Suspect]
     Active Substance: ACETAMINOPHEN
     Indication: ANALGESIC THERAPY
     Dosage: DAILY DOSE 900 MG
     Route: 048
     Dates: start: 20150707, end: 20150711
  5. RINDERON V [Concomitant]
     Active Substance: BETAMETHASONE VALERATE
     Indication: ANTIALLERGIC THERAPY
     Dosage: DAILY DOSE .05 ML
     Route: 055
     Dates: start: 20150707, end: 20150707
  6. OZEX [Concomitant]
     Active Substance: TOSUFLOXACIN TOSYLATE
     Indication: ANTIBIOTIC PROPHYLAXIS
     Dosage: DAILY DOSE 450 MG
     Route: 048
     Dates: start: 20150707, end: 20150711
  7. BESTRON [Concomitant]
     Indication: ANTIBIOTIC PROPHYLAXIS
     Dosage: DAILY DOSE 1 ML
     Route: 055
     Dates: start: 20150707, end: 20150707

REACTIONS (1)
  - Drug-induced liver injury [None]

NARRATIVE: CASE EVENT DATE: 2015
